FAERS Safety Report 25915913 (Version 4)
Quarter: 2025Q4

REPORT INFORMATION
  Report Type: Report from Study
  Country: US (occurrence: US)
  Receive Date: 20251013
  Receipt Date: 20251104
  Transmission Date: 20260117
  Serious: No
  Sender: ABBVIE
  Company Number: US-ABBVIE-6451865

PATIENT
  Age: 78 Year
  Sex: Male
  Weight: 79.378 kg

DRUGS (9)
  1. VYALEV [Suspect]
     Active Substance: FOSCARBIDOPA\FOSLEVODOPA
     Indication: Parkinson^s disease
     Dosage: BASE: 0.40MM/HL
     Route: 058
     Dates: start: 20250829, end: 20251029
  2. VYALEV [Suspect]
     Active Substance: FOSCARBIDOPA\FOSLEVODOPA
     Route: 058
  3. ELIQUIS [Concomitant]
     Active Substance: APIXABAN
     Indication: Anticoagulant therapy
     Dosage: 2.5 MILLIGRAM
  4. FLUDROCORTISONE [Concomitant]
     Active Substance: FLUDROCORTISONE
     Indication: Orthostatic hypotension
     Dosage: 2 DAY
  5. LEVOTHYROXINE [Concomitant]
     Active Substance: LEVOTHYROXINE
     Indication: Hypothyroidism
  6. VITAMIN B12 [Concomitant]
     Active Substance: CYANOCOBALAMIN
     Indication: Vitamin supplementation
  7. VITAMIN D3 [Concomitant]
     Active Substance: CHOLECALCIFEROL
     Indication: Vitamin supplementation
  8. FLORINEF ACETATE [Concomitant]
     Active Substance: FLUDROCORTISONE ACETATE
     Indication: Orthostatic hypotension
     Dosage: 2 TABLETS PER DAY
  9. IMODIUM [Concomitant]
     Active Substance: LOPERAMIDE HYDROCHLORIDE
     Indication: Colostomy
     Dosage: TWO AT NIGHT

REACTIONS (14)
  - Catheter site pain [Not Recovered/Not Resolved]
  - Infusion site bruising [Recovered/Resolved]
  - Infusion site pain [Recovered/Resolved]
  - Infusion site pain [Recovering/Resolving]
  - Infusion site haemorrhage [Recovered/Resolved]
  - Infusion site reaction [Unknown]
  - Infusion site bruising [Recovering/Resolving]
  - Mobility decreased [Not Recovered/Not Resolved]
  - Bradykinesia [Not Recovered/Not Resolved]
  - Catheter site haemorrhage [Unknown]
  - Poor quality sleep [Unknown]
  - Device issue [Unknown]
  - Dyskinesia [Unknown]
  - Infusion site pain [Recovered/Resolved]

NARRATIVE: CASE EVENT DATE: 20250101
